FAERS Safety Report 25005904 (Version 1)
Quarter: 2025Q1

REPORT INFORMATION
  Report Type: Report from Study
  Country: US (occurrence: US)
  Receive Date: 20250224
  Receipt Date: 20250224
  Transmission Date: 20250409
  Serious: Yes (Life-Threatening, Hospitalization)
  Sender: MYLAN
  Company Number: US-MYLANLABS-2025M1015247

PATIENT
  Age: 4 Month
  Sex: Female

DRUGS (8)
  1. ADENOSINE [Suspect]
     Active Substance: ADENOSINE
     Indication: Supraventricular tachycardia
  2. ADENOSINE [Suspect]
     Active Substance: ADENOSINE
     Route: 042
  3. ADENOSINE [Suspect]
     Active Substance: ADENOSINE
     Route: 042
  4. ADENOSINE [Suspect]
     Active Substance: ADENOSINE
  5. AMIODARONE [Suspect]
     Active Substance: AMIODARONE
     Indication: Supraventricular tachycardia
  6. AMIODARONE [Suspect]
     Active Substance: AMIODARONE
     Route: 065
  7. AMIODARONE [Suspect]
     Active Substance: AMIODARONE
     Route: 065
  8. AMIODARONE [Suspect]
     Active Substance: AMIODARONE

REACTIONS (1)
  - Drug ineffective [Unknown]
